FAERS Safety Report 4521360-7 (Version None)
Quarter: 2004Q4

REPORT INFORMATION
  Report Type: 
  Country: None (occurrence: None)
  Receive Date: 20041029
  Receipt Date: 20040812
  Transmission Date: 20050328
  Serious: No
  Sender: FDA-Public Use
  Company Number: 2004-119356-NL

PATIENT
  Age: 35 Year
  Sex: Female
  Weight: 59.9 kg

DRUGS (10)
  1. NUVARING [Suspect]
     Indication: CONTRACEPTION
     Dosage: DF DAILY VAGINAL
     Route: 067
     Dates: start: 20040601
  2. ADVAIR DISKUS 100/50 [Concomitant]
  3. SINGULAIR ^DIECKMANN^ [Concomitant]
  4. HUMBID LA [Concomitant]
  5. ZYRTEC [Concomitant]
  6. SARAFEM [Concomitant]
  7. VITAMIN B COMPLEX CAP [Concomitant]
  8. CALCIUM 600MG + VIT D [Concomitant]
  9. VIT C CHEWABLE [Concomitant]
  10. NASACORT [Concomitant]

REACTIONS (1)
  - RASH PRURITIC [None]
